FAERS Safety Report 20033199 (Version 5)
Quarter: 2022Q1

REPORT INFORMATION
  Report Type: Report from Study
  Country: US (occurrence: US)
  Receive Date: 20211104
  Receipt Date: 20220127
  Transmission Date: 20220423
  Serious: Yes (Hospitalization)
  Sender: FDA-Public Use
  Company Number: US-Global Blood Therapeutics Inc-US-GBT-21-03804

PATIENT
  Age: 53 Year
  Sex: Male

DRUGS (11)
  1. OXBRYTA [Suspect]
     Active Substance: VOXELOTOR
     Indication: Sickle cell disease
     Dates: start: 20201102, end: 20201126
  2. OXBRYTA [Suspect]
     Active Substance: VOXELOTOR
     Dates: start: 20201127, end: 20201209
  3. OXBRYTA [Suspect]
     Active Substance: VOXELOTOR
     Dates: start: 20201210
  4. JADENU [Concomitant]
     Active Substance: DEFERASIROX
     Indication: Sickle cell disease
     Route: 048
     Dates: start: 20190215, end: 20210526
  5. JADENU [Concomitant]
     Active Substance: DEFERASIROX
     Indication: Iron overload
  6. ROXICODONE [Concomitant]
     Active Substance: OXYCODONE HYDROCHLORIDE
     Indication: Sickle cell disease
     Route: 048
     Dates: start: 20191107, end: 20211022
  7. MORPHINE (MS CONTIN) EXTENDED RELEASE [Concomitant]
     Indication: Sickle cell disease
     Route: 048
     Dates: start: 20191107, end: 20210604
  8. HYDROXYUREA [Concomitant]
     Active Substance: HYDROXYUREA
     Indication: Sickle cell disease
     Route: 048
     Dates: start: 20191107, end: 20210204
  9. ERGOCALCIFEROL [Concomitant]
     Active Substance: ERGOCALCIFEROL
     Indication: Sickle cell disease
     Dates: start: 20200129, end: 20210716
  10. FOLIC ACID [Concomitant]
     Active Substance: FOLIC ACID
     Indication: Sickle cell disease
     Route: 048
     Dates: start: 20191107
  11. PACKED RED BLOOD CELLS (PRBC) TRANSFUSIONS [Concomitant]
     Indication: Sickle cell disease
     Dosage: 2 UNITS
     Dates: start: 20201201, end: 20201201

REACTIONS (4)
  - Hypoxia [Recovered/Resolved]
  - Sickle cell anaemia with crisis [Recovered/Resolved]
  - Acute kidney injury [Recovered/Resolved]
  - Mental status changes [Recovered/Resolved]

NARRATIVE: CASE EVENT DATE: 20201127
